FAERS Safety Report 21344553 (Version 1)
Quarter: 2022Q3

REPORT INFORMATION
  Report Type: Spontaneous
  Country: US (occurrence: US)
  Receive Date: 20220916
  Receipt Date: 20220916
  Transmission Date: 20221026
  Serious: No
  Sender: FDA-Public Use
  Company Number: US-NOVEN PHARMACEUTICALS, INC.-2021-NOV-US003770

PATIENT
  Sex: Female

DRUGS (3)
  1. COMBIPATCH [Suspect]
     Active Substance: ESTRADIOL\NORETHINDRONE ACETATE
     Indication: Hormone replacement therapy
     Dosage: 0.05/0.14MG, UNKNOWN
     Route: 062
     Dates: start: 2020
  2. COMBIPATCH [Suspect]
     Active Substance: ESTRADIOL\NORETHINDRONE ACETATE
     Dosage: 0.05/0.14MG, UNKNOWN
     Route: 062
  3. OXYCODONE [Concomitant]
     Active Substance: OXYCODONE
     Indication: Product used for unknown indication
     Dosage: 30 MG DAILY, 8 TABLETS
     Route: 065

REACTIONS (1)
  - Abnormal behaviour [Recovered/Resolved]
